FAERS Safety Report 7608261-2 (Version None)
Quarter: 2011Q3

REPORT INFORMATION
  Report Type: 
  Country: None (occurrence: None)
  Receive Date: 20110714
  Receipt Date: 20110629
  Transmission Date: 20111222
  Serious: Yes (Hospitalization, Other)
  Sender: FDA-Public Use
  Company Number: US-CELGENEUS-163-21880-11061735

PATIENT
  Sex: Female

DRUGS (26)
  1. NEUPOGEN [Concomitant]
     Indication: NEUTROPHIL COUNT DECREASED
  2. ULTRAM [Concomitant]
     Dosage: 50 MILLIGRAM
     Route: 048
  3. CLOTRIMAZOLE [Concomitant]
     Indication: PROPHYLAXIS
     Dosage: 30 MILLIGRAM
     Route: 048
  4. LOVENOX [Concomitant]
     Dosage: 60 MG/0.6ML
     Route: 058
  5. METHYLCELLULOSE [Concomitant]
     Dosage: 1 SCOOP W/ 8 OZ OF WATER
     Route: 048
  6. REVLIMID [Suspect]
     Dosage: 5 MILLIGRAM
     Route: 048
     Dates: start: 20101201, end: 20110601
  7. LOMOTIL [Concomitant]
     Dosage: 2.5 MG - 0.025 MG
     Route: 048
  8. GABAPENTIN [Concomitant]
     Dosage: 1200 MILLIGRAM
     Route: 048
  9. TYLENOL-500 [Concomitant]
     Route: 048
  10. ACYCLOVIR [Concomitant]
     Dosage: 800 MILLIGRAM
     Route: 048
  11. ALLOPURINOL [Concomitant]
     Dosage: 100 MILLIGRAM
     Route: 048
  12. MULTI-VITAMINS [Concomitant]
     Route: 065
  13. OMEPRAZOLE [Concomitant]
     Dosage: 40 MILLIGRAM
     Route: 048
  14. REVLIMID [Suspect]
     Indication: MULTIPLE MYELOMA
     Dosage: 25 MILLIGRAM
     Route: 048
     Dates: start: 20100427, end: 20100101
  15. REVLIMID [Suspect]
     Dosage: 15MG-10MG
     Route: 048
     Dates: start: 20100601, end: 20100101
  16. DEXAMETHASONE [Concomitant]
     Dosage: 10 MILLIGRAM
     Route: 048
  17. NOXAFIL [Concomitant]
     Dosage: 40 MILLIGRAM/MILLILITERS
     Route: 048
  18. SPIRIVA [Concomitant]
     Dosage: 18 MICROGRAM
     Route: 055
  19. KAYEXALATE [Concomitant]
     Dosage: 15G/60ML
     Route: 048
  20. REVLIMID [Suspect]
     Dosage: 5 MILLIGRAM
     Route: 048
     Dates: start: 20110614, end: 20110621
  21. OXYGEN [Concomitant]
     Route: 065
  22. NEUPOGEN [Concomitant]
     Indication: LEUKOPENIA
     Route: 058
  23. FLUTICASONE PROPIONATE [Concomitant]
     Dosage: 1-2 SPRAYS INTO BOTH NOSTRILS
     Route: 045
  24. ZOFRAN [Concomitant]
     Indication: NAUSEA
     Dosage: 4 MILLIGRAM
     Route: 048
  25. OXYGEN [Concomitant]
     Indication: HYPOXIA
     Dosage: 1.5 LITERS
     Route: 065
  26. ALBUTEROL [Concomitant]
     Dosage: 2 PUFFS
     Route: 065

REACTIONS (5)
  - PERICARDIAL EFFUSION [None]
  - PNEUMONIA [None]
  - PULMONARY EMBOLISM [None]
  - HYPOXIA [None]
  - URINARY TRACT INFECTION [None]
